FAERS Safety Report 10253400 (Version 2)
Quarter: 2014Q3

REPORT INFORMATION
  Report Type: Not Available
  Country: CH (occurrence: CH)
  Receive Date: 20140623
  Receipt Date: 20140701
  Transmission Date: 20150326
  Serious: Yes (Hospitalization)
  Sender: FDA-Public Use
  Company Number: CH-MUNDIPHARMA DS AND PHARMACOVIGILANCE-DEU-2014-0014763

PATIENT
  Sex: Male

DRUGS (9)
  1. DUPHALAC                           /01526201/ [Concomitant]
     Indication: PRODUCT USED FOR UNKNOWN INDICATION
  2. BECOZYM                            /01526001/ [Concomitant]
     Indication: PRODUCT USED FOR UNKNOWN INDICATION
  3. BENERVA [Concomitant]
     Active Substance: THIAMINE
     Indication: PRODUCT USED FOR UNKNOWN INDICATION
  4. NOVALGIN [Concomitant]
     Active Substance: METAMIZOLE SODIUM
     Indication: PRODUCT USED FOR UNKNOWN INDICATION
     Dosage: UNK, PRN
  5. TRANSIPEG                          /00754501/ [Concomitant]
     Active Substance: POLYETHYLENE GLYCOL 3350
     Indication: PRODUCT USED FOR UNKNOWN INDICATION
  6. ESOMEPRAZOLE [Concomitant]
     Active Substance: ESOMEPRAZOLE
     Indication: PRODUCT USED FOR UNKNOWN INDICATION
  7. MORPHIN                            /00036303/ [Suspect]
     Active Substance: MORPHINE
     Indication: TUMOUR PAIN
     Dosage: 20 MG/HR, PRN
     Route: 048
     Dates: start: 201311, end: 20140306
  8. PASPERTIN                          /00041902/ [Concomitant]
     Active Substance: METOCLOPRAMIDE HYDROCHLORIDE
     Indication: PRODUCT USED FOR UNKNOWN INDICATION
     Dosage: UNK UNK, PRN
  9. MST CONTINUS TABLETTEN RETARD [Suspect]
     Active Substance: MORPHINE SULFATE
     Indication: TUMOUR PAIN
     Dosage: 80 MG, BID
     Route: 048
     Dates: start: 201311, end: 20140306

REACTIONS (3)
  - Overdose [Recovered/Resolved]
  - Pneumonia aspiration [Recovered/Resolved]
  - Delirium [Recovered/Resolved]

NARRATIVE: CASE EVENT DATE: 20140306
